FAERS Safety Report 10147326 (Version 1)
Quarter: 2014Q2

REPORT INFORMATION
  Report Type: Spontaneous
  Country: US (occurrence: US)
  Receive Date: 20140501
  Receipt Date: 20140501
  Transmission Date: 20141212
  Serious: No
  Sender: FDA-Public Use
  Company Number: US-009507513-1405USA000487

PATIENT
  Age: 21 Year
  Sex: Female

DRUGS (2)
  1. AMITRIPTYLINE HYDROCHLORIDE [Suspect]
     Indication: AFFECTIVE DISORDER
     Route: 048
  2. AMITRIPTYLINE HYDROCHLORIDE [Suspect]
     Indication: ANXIETY

REACTIONS (1)
  - Drug ineffective [Unknown]
